FAERS Safety Report 13801025 (Version 1)
Quarter: 2017Q3

REPORT INFORMATION
  Report Type: Spontaneous
  Country: ES (occurrence: ES)
  Receive Date: 20170727
  Receipt Date: 20170727
  Transmission Date: 20171127
  Serious: Yes (Hospitalization, Other)
  Sender: FDA-Public Use
  Company Number: PHHY2017ES109037

PATIENT
  Age: 56 Year
  Sex: Male

DRUGS (1)
  1. NILOTINIB [Suspect]
     Active Substance: NILOTINIB
     Indication: CHRONIC MYELOID LEUKAEMIA
     Dosage: 300 MG, BID
     Route: 065

REACTIONS (7)
  - Ischaemic stroke [Unknown]
  - Retinal artery occlusion [Not Recovered/Not Resolved]
  - Hemiplegia [Unknown]
  - Aphasia [Unknown]
  - Dysarthria [Unknown]
  - Hemiparesis [Unknown]
  - Hypoaesthesia [Unknown]
